FAERS Safety Report 5656033-0 (Version None)
Quarter: 2008Q1

REPORT INFORMATION
  Report Type: 
  Country: None (occurrence: None)
  Receive Date: 20080307
  Receipt Date: 20080226
  Transmission Date: 20080703
  Serious: Yes (Hospitalization, Other)
  Sender: FDA-Public Use
  Company Number: US-PFIZER INC-2008018980

PATIENT
  Sex: Female
  Weight: 69.09 kg

DRUGS (2)
  1. SOLU-MEDROL [Suspect]
     Indication: ASTHMA
     Dosage: DAILY DOSE:125MG
     Route: 030
  2. XOPENEX [Concomitant]

REACTIONS (10)
  - BLOOD PRESSURE INCREASED [None]
  - FINGER DEFORMITY [None]
  - HEART RATE INCREASED [None]
  - HYPOAESTHESIA [None]
  - MONOPLEGIA [None]
  - MUSCULOSKELETAL STIFFNESS [None]
  - PARAESTHESIA [None]
  - SENSORY LOSS [None]
  - SKIN DISCOLOURATION [None]
  - SKIN FISSURES [None]
